FAERS Safety Report 7629426-X (Version None)
Quarter: 2011Q3

REPORT INFORMATION
  Report Type: 
  Country: None (occurrence: None)
  Receive Date: 20110722
  Receipt Date: 20110713
  Transmission Date: 20111222
  Serious: Yes (Hospitalization)
  Sender: FDA-Public Use
  Company Number: KR-JNJFOC-20110706397

PATIENT
  Sex: Male
  Weight: 73.4 kg

DRUGS (11)
  1. ULCERMIN [Concomitant]
     Indication: GASTROINTESTINAL DISORDER
     Route: 048
  2. PALIPERIDONE [Suspect]
     Indication: SCHIZOPHRENIA
     Route: 030
     Dates: start: 20110706, end: 20110706
  3. ISOCONAZOLE [Concomitant]
     Route: 065
  4. LORAZEPAM [Concomitant]
  5. LORAZEPAM [Concomitant]
  6. ACETAMINOPHEN [Concomitant]
     Indication: HEADACHE
     Route: 048
  7. LORAZEPAM [Concomitant]
     Indication: ANXIETY
  8. LORAZEPAM [Concomitant]
  9. LORAZEPAM [Concomitant]
  10. ZOLPIDEM [Concomitant]
     Indication: INSOMNIA
  11. AMMONIUM LACTATE [Concomitant]
     Route: 065

REACTIONS (1)
  - SCHIZOPHRENIA [None]
